FAERS Safety Report 6134072-3 (Version None)
Quarter: 2009Q1

REPORT INFORMATION
  Report Type: 
  Country: None (occurrence: None)
  Receive Date: 20090326
  Receipt Date: 20090317
  Transmission Date: 20090719
  Serious: Yes (Hospitalization)
  Sender: FDA-Public Use
  Company Number: JP-B.I. PHARMACEUTICALS,INC./RIDGEFIELD-2009-BP-01381NB

PATIENT
  Sex: Male
  Weight: 73 kg

DRUGS (12)
  1. BI-SIFROL TABLETS [Suspect]
     Indication: PARKINSONISM
     Dosage: .125MG
     Route: 048
     Dates: start: 20081209, end: 20090120
  2. MICARDIS [Concomitant]
     Indication: HYPERTENSION
     Dosage: 40MG
     Route: 048
  3. LIVALO [Concomitant]
     Indication: HYPERLIPIDAEMIA
     Dosage: 2MG
     Route: 048
  4. KREMEZIN [Concomitant]
     Indication: RENAL FAILURE
     Dosage: 4G
     Route: 048
  5. ODRIC [Concomitant]
     Indication: HYPERTENSION
     Dosage: 1MG
     Route: 048
  6. ALOSITOL [Concomitant]
     Indication: HYPERURICAEMIA
     Route: 048
  7. ADALAT [Concomitant]
     Indication: HYPERTENSION
     Dosage: 40MG
     Route: 048
  8. SIGMART [Concomitant]
     Indication: ANGINA PECTORIS
     Dosage: 15MG
     Route: 048
  9. PRORENAL [Concomitant]
     Indication: ISCHAEMIA
     Dosage: 15MG
     Route: 048
  10. LASIX [Concomitant]
     Indication: HYPERTENSION
     Dosage: 20MG
     Route: 048
  11. ALOSENN [Concomitant]
     Indication: CONSTIPATION
     Route: 048
  12. EPOGIN [Concomitant]
     Indication: NEPHROGENIC ANAEMIA
     Route: 058

REACTIONS (2)
  - DIARRHOEA [None]
  - RENAL IMPAIRMENT [None]
